FAERS Safety Report 16208903 (Version 2)
Quarter: 2019Q2

REPORT INFORMATION
  Report Type: Spontaneous
  Country: US (occurrence: US)
  Receive Date: 20190417
  Receipt Date: 20190521
  Transmission Date: 20190711
  Serious: No
  Sender: FDA-Public Use
  Company Number: US-SA-2019SA103609

PATIENT
  Age: 67 Year
  Sex: Female
  Weight: 81.63 kg

DRUGS (17)
  1. DUPIXENT [Suspect]
     Active Substance: DUPILUMAB
     Indication: ASTHMA
  2. NORTRIPTYLINE [Concomitant]
     Active Substance: NORTRIPTYLINE
  3. AZELASTINE. [Concomitant]
     Active Substance: AZELASTINE HYDROCHLORIDE
  4. ADVIL [IBUPROFEN] [Concomitant]
     Active Substance: IBUPROFEN
  5. TACROLIMUS. [Concomitant]
     Active Substance: TACROLIMUS
  6. DESONIDE. [Concomitant]
     Active Substance: DESONIDE
  7. RISEDRONATE SODIUM. [Concomitant]
     Active Substance: RISEDRONATE SODIUM
  8. DUPIXENT [Suspect]
     Active Substance: DUPILUMAB
     Indication: DERMATITIS ATOPIC
     Dosage: 300 MG, QOW
     Route: 058
     Dates: start: 20181206
  9. VENTOLIN HFA [Concomitant]
     Active Substance: ALBUTEROL SULFATE
  10. STIOLTO RESPIMAT [Concomitant]
     Active Substance: OLODATEROL HYDROCHLORIDE\TIOTROPIUM BROMIDE MONOHYDRATE
  11. HYDROXYZINE HCL [Concomitant]
     Active Substance: HYDROXYZINE HYDROCHLORIDE
  12. TOPIRAMATE. [Concomitant]
     Active Substance: TOPIRAMATE
  13. CLINDAMYCIN PHOSPHATE. [Concomitant]
     Active Substance: CLINDAMYCIN PHOSPHATE
  14. RIZATRIPTAN. [Concomitant]
     Active Substance: RIZATRIPTAN
  15. MONTELUKAST SODIUM. [Concomitant]
     Active Substance: MONTELUKAST SODIUM
  16. POLYCIN [Concomitant]
     Active Substance: BACITRACIN\BACITRACIN ZINC\POLYMYXIN B SULFATE
  17. IPRATROPIUM BROMIDE. [Concomitant]
     Active Substance: IPRATROPIUM BROMIDE

REACTIONS (8)
  - Pruritus [Unknown]
  - Dry skin [Unknown]
  - Erythema [Unknown]
  - Hair colour changes [Unknown]
  - Skin exfoliation [Unknown]
  - Rash [Unknown]
  - Vitamin D decreased [Unknown]
  - Skin haemorrhage [Unknown]
